FAERS Safety Report 5248316-3 (Version None)
Quarter: 2007Q1

REPORT INFORMATION
  Report Type: 
  Country: None (occurrence: None)
  Receive Date: 20070227
  Receipt Date: 20070215
  Transmission Date: 20070707
  Serious: Yes (Hospitalization)
  Sender: FDA-Public Use
  Company Number: DE-SHR-DE-2007-005760

PATIENT
  Age: 42 Year
  Sex: Female

DRUGS (2)
  1. BETASERON [Suspect]
     Dosage: .5 ML, UNK
     Route: 058
     Dates: start: 20070131, end: 20070210
  2. OPTIPECT [Concomitant]

REACTIONS (8)
  - ABASIA [None]
  - DIARRHOEA [None]
  - ORAL INTAKE REDUCED [None]
  - PYREXIA [None]
  - RASH PAPULAR [None]
  - SCARLET FEVER [None]
  - TONGUE ERUPTION [None]
  - VOMITING [None]
